FAERS Safety Report 8737853 (Version 2)
Quarter: 2013Q4

REPORT INFORMATION
  Report Type: Spontaneous
  Country: FR (occurrence: FR)
  Receive Date: 20120823
  Receipt Date: 20131031
  Transmission Date: 20140711
  Serious: Yes (Disabling)
  Sender: FDA-Public Use
  Company Number: FR-009507513-1208FRA005463

PATIENT
  Sex: Female

DRUGS (5)
  1. ZOCOR 20MG [Suspect]
     Indication: ATHEROSCLEROSIS PROPHYLAXIS
     Dosage: 20 MG, QD
     Route: 048
     Dates: start: 2005, end: 20120710
  2. LANTUS [Concomitant]
     Indication: TYPE 1 DIABETES MELLITUS
     Route: 058
  3. NOVORAPID [Concomitant]
     Indication: TYPE 1 DIABETES MELLITUS
     Route: 058
  4. NOVOMIX [Concomitant]
     Indication: TYPE 1 DIABETES MELLITUS
     Route: 058
  5. TOPALGIC (TRAMADOL HYDROCHLORIDE) [Concomitant]
     Dosage: 200 MG, QD
     Route: 048

REACTIONS (3)
  - Periarthritis [Unknown]
  - Neuropathy peripheral [Recovering/Resolving]
  - Rotator cuff syndrome [Unknown]
